FAERS Safety Report 9548058 (Version 1)
Quarter: 2013Q3

REPORT INFORMATION
  Report Type: Spontaneous
  Country: US (occurrence: US)
  Receive Date: 20130924
  Receipt Date: 20130924
  Transmission Date: 20140515
  Serious: Yes (Other)
  Sender: FDA-Public Use
  Company Number: US-PURDUE-USA-2011-0072735

PATIENT
  Sex: Male

DRUGS (2)
  1. MS CONTIN TABLETS [Suspect]
     Indication: DRUG ABUSE
  2. CODEINE [Suspect]
     Indication: DRUG ABUSE

REACTIONS (1)
  - Drug abuse [Unknown]
